FAERS Safety Report 5272839-4 (Version None)
Quarter: 2007Q1

REPORT INFORMATION
  Report Type: 
  Country: None (occurrence: None)
  Receive Date: 20070322
  Receipt Date: 20070314
  Transmission Date: 20070707
  Serious: Yes (Death)
  Sender: FDA-Public Use
  Company Number: KR-GILEAD-2007-0011469

PATIENT
  Sex: Male

DRUGS (5)
  1. ADEFOVIR DIPIVOXIL [Suspect]
     Indication: HEPATITIS B
     Route: 048
     Dates: start: 20051227
  2. LAMIVUDINE [Concomitant]
     Dates: start: 20050520
  3. FRUSEMIDE [Concomitant]
     Dates: start: 20050530
  4. SPIRONOLACTONE [Concomitant]
     Dates: start: 20050530
  5. PROPRANOLOL HYDROCHLORIDE [Concomitant]
     Dates: start: 20050521

REACTIONS (1)
  - OESOPHAGEAL VARICES HAEMORRHAGE [None]
